FAERS Safety Report 7235179-X (Version None)
Quarter: 2011Q1

REPORT INFORMATION
  Report Type: 
  Country: None (occurrence: None)
  Receive Date: 20110111
  Receipt Date: 20101230
  Transmission Date: 20110831
  Serious: Yes (Death, Hospitalization)
  Sender: FDA-Public Use
  Company Number: 2011MA000043

PATIENT
  Age: 56 Year
  Sex: Male

DRUGS (7)
  1. LACTULOSE [Concomitant]
  2. IBUPROFEN [Suspect]
     Indication: ILL-DEFINED DISORDER
     Dosage: ;PO
     Route: 048
     Dates: start: 20051121, end: 20060206
  3. MORPHINE [Concomitant]
  4. SUNITINIB (NO PREF. NAME) [Suspect]
     Indication: GASTROINTESTINAL STROMAL TUMOUR
     Dosage: 50 MG;QD;PO
     Route: 048
     Dates: start: 20050802, end: 20060205
  5. ZOFRAN [Concomitant]
  6. LAXOBERAL [Concomitant]
  7. CONTALGIN [Concomitant]

REACTIONS (3)
  - NAUSEA [None]
  - GASTROINTESTINAL HAEMORRHAGE [None]
  - GASTRIC ULCER [None]
